FAERS Safety Report 11647645 (Version 1)
Quarter: 2015Q4

REPORT INFORMATION
  Report Type: Spontaneous
  Country: US (occurrence: US)
  Receive Date: 20151021
  Receipt Date: 20151021
  Transmission Date: 20160304
  Serious: No
  Sender: FDA-Public Use
  Company Number: US-TEVA-586075USA

PATIENT
  Age: 66 Year
  Sex: Female

DRUGS (3)
  1. NORTIPTYLINE [Concomitant]
     Active Substance: NORTRIPTYLINE
     Indication: MIGRAINE
  2. ESTRACE [Suspect]
     Active Substance: ESTRADIOL
     Indication: MIGRAINE
     Route: 048
  3. VERAPAMIL [Concomitant]
     Active Substance: VERAPAMIL HYDROCHLORIDE
     Indication: MIGRAINE

REACTIONS (2)
  - Endometriosis [Unknown]
  - Migraine [Not Recovered/Not Resolved]
